FAERS Safety Report 16785133 (Version 3)
Quarter: 2019Q3

REPORT INFORMATION
  Report Type: Report from Study
  Country: JP (occurrence: JP)
  Receive Date: 20190909
  Receipt Date: 20190920
  Transmission Date: 20191005
  Serious: Yes (Other)
  Sender: FDA-Public Use
  Company Number: JP-CELGENEUS-JPN-20190901112

PATIENT
  Age: 68 Year
  Sex: Male
  Weight: 66.2 kg

DRUGS (40)
  1. PREDNISONE. [Suspect]
     Active Substance: PREDNISONE
     Indication: DIFFUSE LARGE B-CELL LYMPHOMA
     Dosage: 100 MILLIGRAM
     Route: 065
     Dates: start: 20160706, end: 20161020
  2. MINOCYCLINE HYDROCHLORIDE. [Concomitant]
     Active Substance: MINOCYCLINE HYDROCHLORIDE
     Indication: PYREXIA
     Dosage: 100 MILLIGRAM
     Route: 048
     Dates: start: 20190806, end: 20190827
  3. SODIUM GUALENATE HYDRATE [Concomitant]
     Active Substance: SODIUM GUALENATE MONOHYDRATE
     Indication: INFECTION PROPHYLAXIS
     Route: 061
     Dates: start: 201904
  4. CARBAZOCHROME SODIUM SULFONATE HYDRATE [Concomitant]
     Indication: PREMEDICATION
     Dosage: 50 MILLIGRAM
     Route: 041
     Dates: start: 20190821, end: 20190821
  5. CARBAZOCHROME SODIUM SULFONATE HYDRATE [Concomitant]
     Indication: LOWER GASTROINTESTINAL HAEMORRHAGE
     Dosage: 100 MILLIGRAM
     Route: 041
     Dates: start: 20190829
  6. FULCALIQ [Concomitant]
     Active Substance: AMINO ACIDS\CARBOHYDRATES\ELECTROLYTES NOS\VITAMINS
     Indication: DECREASED APPETITE
     Dosage: 1003 TO 1504.5 MILLILITER
     Route: 041
     Dates: start: 20190829
  7. CYTARABINE. [Concomitant]
     Active Substance: CYTARABINE
     Indication: DIFFUSE LARGE B-CELL LYMPHOMA
     Dosage: UNKNOWN
     Route: 065
     Dates: start: 20190402, end: 20190604
  8. RITUXIMAB. [Suspect]
     Active Substance: RITUXIMAB
     Indication: DIFFUSE LARGE B-CELL LYMPHOMA
     Route: 065
     Dates: start: 20160706, end: 20161020
  9. CILASTATIN SODIUM, IMIPENEM HYDRATE [Concomitant]
     Dosage: 1.5 GRAM
     Route: 041
     Dates: start: 20190830
  10. BETAMETHASONE VALERATE. [Concomitant]
     Active Substance: BETAMETHASONE VALERATE
     Indication: URTICARIA
     Route: 061
     Dates: start: 20190821
  11. ACETAZOLAMIDE. [Concomitant]
     Active Substance: ACETAZOLAMIDE
     Indication: OEDEMA
     Dosage: 250 MILLIGRAM
     Route: 048
     Dates: start: 20190827
  12. DEXAMETHASONE. [Concomitant]
     Active Substance: DEXAMETHASONE
     Indication: DIFFUSE LARGE B-CELL LYMPHOMA
     Dosage: UNKNOWN
     Route: 065
     Dates: start: 20190402, end: 20190604
  13. CC-5013 [Suspect]
     Active Substance: LENALIDOMIDE
     Indication: DIFFUSE LARGE B-CELL LYMPHOMA
     Dosage: 15 MILLIGRAM
     Route: 048
     Dates: start: 20160706, end: 20161020
  14. NAPROXEN. [Concomitant]
     Active Substance: NAPROXEN
     Indication: PYREXIA
     Dosage: 300 MILLIGRAM
     Route: 048
     Dates: start: 20190731, end: 20190807
  15. LOXOPROFEN SODIUM HYDRATE [Concomitant]
     Active Substance: LOXOPROFEN SODIUM DIHYDRATE
     Indication: PYREXIA
     Dosage: 180 MILLIGRAM
     Route: 048
     Dates: start: 20190819
  16. LANSOPRAZOLE. [Concomitant]
     Active Substance: LANSOPRAZOLE
     Indication: GASTRITIS PROPHYLAXIS
     Dosage: 15 MILLIGRAM
     Route: 048
     Dates: start: 20190827
  17. RITUXIMAB. [Suspect]
     Active Substance: RITUXIMAB
     Dosage: UNKNOWN
     Route: 065
     Dates: start: 20190402, end: 20190604
  18. CILASTATIN SODIUM, IMIPENEM HYDRATE [Concomitant]
     Indication: PYREXIA
     Dosage: 1.5 GRAM
     Route: 041
     Dates: start: 20190803, end: 20190808
  19. PREDNISOLONE. [Concomitant]
     Active Substance: PREDNISOLONE
     Indication: PYREXIA
     Route: 048
     Dates: start: 20190822
  20. FLUORODEOXYGLUCOSE [Concomitant]
     Indication: PREMEDICATION
     Dosage: UNKNOWN
     Route: 065
     Dates: start: 20190814, end: 20190814
  21. BETAMETHASONE D-CHLORPHENIRAMINE MALEATE [Concomitant]
     Indication: URTICARIA
     Dosage: 2 TABLET
     Route: 048
     Dates: start: 20190628, end: 20190813
  22. MAGNESIUM OXIDE. [Concomitant]
     Active Substance: MAGNESIUM OXIDE
     Indication: CONSTIPATION PROPHYLAXIS
     Dosage: 990 MILLIGRAM
     Route: 048
     Dates: start: 20160803
  23. MOVIPREP [Concomitant]
     Active Substance: ASCORBIC ACID\POLYETHYLENE GLYCOL 3350\POTASSIUM CHLORIDE\SODIUM ASCORBATE\SODIUM CHLORIDE\SODIUM SULFATE
     Indication: PREMEDICATION
     Dosage: 1500 MILLILITER
     Route: 048
     Dates: start: 20190828, end: 20190828
  24. DOXORUBICIN [Suspect]
     Active Substance: DOXORUBICIN
     Indication: HODGKIN^S DISEASE
     Dosage: UNKNOWN
     Route: 065
     Dates: start: 20190909
  25. VINCRISTINE [Suspect]
     Active Substance: VINCRISTINE
     Indication: DIFFUSE LARGE B-CELL LYMPHOMA
     Route: 065
     Dates: start: 20160706, end: 20161020
  26. CELECOXIB. [Concomitant]
     Active Substance: CELECOXIB
     Indication: PYREXIA
     Dosage: 200 MILLIGRAM
     Route: 048
     Dates: start: 20190807, end: 20190819
  27. FUROSEMIDE. [Concomitant]
     Active Substance: FUROSEMIDE
     Indication: WEIGHT INCREASED
     Route: 041
     Dates: start: 20190825, end: 20190825
  28. ETOPOSIDE. [Concomitant]
     Active Substance: ETOPOSIDE
     Indication: DIFFUSE LARGE B-CELL LYMPHOMA
     Dosage: UNKNOWN
     Route: 065
     Dates: start: 20190402, end: 20190604
  29. CYCLOPHOSPHAMIDE. [Suspect]
     Active Substance: CYCLOPHOSPHAMIDE
     Indication: DIFFUSE LARGE B-CELL LYMPHOMA
     Route: 065
     Dates: start: 20160706, end: 20161020
  30. CYCLOPHOSPHAMIDE. [Suspect]
     Active Substance: CYCLOPHOSPHAMIDE
     Dosage: UNKNOWN
     Route: 065
     Dates: start: 20190402, end: 20190604
  31. TELMISARTAN. [Concomitant]
     Active Substance: TELMISARTAN
     Indication: HYPERTENSION
     Dosage: 40 MILLIGRAM
     Route: 048
     Dates: start: 20190326, end: 20190827
  32. FULCALIQ [Concomitant]
     Active Substance: AMINO ACIDS\CARBOHYDRATES\ELECTROLYTES NOS\VITAMINS
     Indication: DECREASED APPETITE
     Dosage: 1354.5 MILLILITER
     Route: 041
     Dates: start: 20190827, end: 20190828
  33. SODIUM PICOSULFATE HYDRATE [Concomitant]
     Active Substance: SODIUM PICOSULFATE
     Indication: PREMEDICATION
     Dosage: 5 MILLILITER
     Route: 048
     Dates: start: 20190828, end: 20190828
  34. DOXORUBICIN [Suspect]
     Active Substance: DOXORUBICIN
     Indication: DIFFUSE LARGE B-CELL LYMPHOMA
     Route: 065
     Dates: start: 20160706, end: 20161020
  35. ZOLPIDEM TARTRATE. [Concomitant]
     Active Substance: ZOLPIDEM TARTRATE
     Indication: INSOMNIA
     Dosage: 5 MILLIGRAM
     Route: 048
     Dates: start: 20180404
  36. REBAMIPIDE [Concomitant]
     Active Substance: REBAMIPIDE
     Indication: GASTRITIS PROPHYLAXIS
     Dosage: 300 MILLIGRAM
     Route: 048
     Dates: start: 201901
  37. PANTETHINE [Concomitant]
     Active Substance: PANTETHINE
     Indication: CONSTIPATION PROPHYLAXIS
     Dosage: 300 MILLIGRAM
     Route: 048
     Dates: start: 20160803
  38. PENTAZOCINE [Concomitant]
     Active Substance: PENTAZOCINE
     Indication: PREMEDICATION
     Dosage: 15 MILLIGRAM
     Route: 041
     Dates: start: 20190821, end: 20190821
  39. CEFTAZIDIME HYDRATE [Concomitant]
     Active Substance: CEFTAZIDIME
     Indication: PYREXIA
     Dosage: 4 GRAM
     Route: 041
     Dates: start: 20190823, end: 20190829
  40. BFLUID [Concomitant]
     Active Substance: AMINO ACIDS\DEXTROSE\ELECTROLYTES NOS\VITAMINS
     Indication: PRODUCT USED FOR UNKNOWN INDICATION
     Dosage: 1000 MILLILITER
     Route: 041
     Dates: start: 20190824, end: 20190824

REACTIONS (1)
  - Hodgkin^s disease [Not Recovered/Not Resolved]

NARRATIVE: CASE EVENT DATE: 20190902
